FAERS Safety Report 23762669 (Version 1)
Quarter: 2024Q2

REPORT INFORMATION
  Report Type: Spontaneous
  Country: US (occurrence: US)
  Receive Date: 20240419
  Receipt Date: 20240419
  Transmission Date: 20240715
  Serious: No
  Sender: FDA-Public Use
  Company Number: US-PHATHOM PHARMACEUTICALS INC.-2024PHT00142

PATIENT
  Age: 6 Decade
  Sex: Male

DRUGS (1)
  1. VOQUEZNA TRIPLE PAK [Suspect]
     Active Substance: AMOXICILLIN\CLARITHROMYCIN\VONOPRAZAN FUMARATE
     Indication: Helicobacter infection
     Dosage: VONOPRAZAN 20 MG, AMOXICILLIN 500 MG, CLARITHROMYCIN 500 MG
     Route: 048
     Dates: start: 2024, end: 2024

REACTIONS (2)
  - Urine output decreased [Unknown]
  - Insomnia [Unknown]

NARRATIVE: CASE EVENT DATE: 20240101
